FAERS Safety Report 4472792-7 (Version None)
Quarter: 2004Q4

REPORT INFORMATION
  Report Type: 
  Country: None (occurrence: None)
  Receive Date: 20041012
  Receipt Date: 20041012
  Transmission Date: 20050328
  Serious: No
  Sender: FDA-Public Use
  Company Number: None

PATIENT
  Age: 39 Year
  Sex: Female
  Weight: 52.1637 kg

DRUGS (1)
  1. ZOLOFT [Suspect]
     Indication: DEPRESSION
     Dosage: 50 MGS DAILY ORAL
     Route: 048
     Dates: start: 20030101, end: 20041004

REACTIONS (5)
  - ABNORMAL BEHAVIOUR [None]
  - AGGRESSION [None]
  - FLAT AFFECT [None]
  - IRRITABILITY [None]
  - RELATIONSHIP BREAKDOWN [None]
